FAERS Safety Report 10235808 (Version 1)
Quarter: 2014Q2

REPORT INFORMATION
  Report Type: Spontaneous
  Country: US (occurrence: US)
  Receive Date: 20140613
  Receipt Date: 20140613
  Transmission Date: 20141212
  Serious: No
  Sender: FDA-Public Use
  Company Number: US-BAYER-2014-088694

PATIENT
  Age: 33 Year
  Sex: Male
  Weight: 116 kg

DRUGS (4)
  1. ALEVE TABLET [Suspect]
     Route: 048
  2. ALEVE TABLET [Suspect]
     Dosage: 3 DF, ONCE
     Route: 048
     Dates: start: 20140611, end: 20140611
  3. CHLORTHALIDONE [Concomitant]
  4. NORVASC [Concomitant]

REACTIONS (1)
  - Inappropriate schedule of drug administration [Unknown]
